FAERS Safety Report 9103775 (Version 2)
Quarter: 2013Q2

REPORT INFORMATION
  Report Type: Spontaneous
  Country: US (occurrence: US)
  Receive Date: 20130219
  Receipt Date: 20130415
  Transmission Date: 20140414
  Serious: Yes (Death, Hospitalization, Other)
  Sender: FDA-Public Use
  Company Number: US-BAXTER-2013BAX005769

PATIENT
  Age: 73 Year
  Sex: Female

DRUGS (2)
  1. DIANEAL LOW CALCIUM [Suspect]
     Indication: PERITONEAL DIALYSIS
     Route: 033
     Dates: start: 19880312, end: 201303
  2. DIANEAL LOW CALCIUM [Suspect]
     Route: 033
     Dates: start: 19880312, end: 201303

REACTIONS (5)
  - Death [Fatal]
  - Fall [Unknown]
  - Hip fracture [Recovering/Resolving]
  - Wound [Unknown]
  - Sepsis [Unknown]
